FAERS Safety Report 11213611 (Version 1)
Quarter: 2015Q2

REPORT INFORMATION
  Report Type: Spontaneous
  Country: US (occurrence: US)
  Receive Date: 20150623
  Receipt Date: 20150623
  Transmission Date: 20150821
  Serious: Yes (Other)
  Sender: FDA-Public Use
  Company Number: US-ASTELLAS-2015US021459

PATIENT
  Age: 77 Year
  Sex: Male

DRUGS (2)
  1. VESICARE [Suspect]
     Active Substance: SOLIFENACIN SUCCINATE
     Indication: POLLAKIURIA
  2. VESICARE [Suspect]
     Active Substance: SOLIFENACIN SUCCINATE
     Indication: RENAL DISORDER
     Dosage: 10 MG, ONCE DAILY BY MOUTH
     Route: 048

REACTIONS (3)
  - Eye disorder [Unknown]
  - Pain [Unknown]
  - Mole excision [Unknown]

NARRATIVE: CASE EVENT DATE: 20150617
